FAERS Safety Report 13528767 (Version 3)
Quarter: 2019Q4

REPORT INFORMATION
  Report Type: Spontaneous
  Country: US (occurrence: US)
  Receive Date: 20170509
  Receipt Date: 20191209
  Transmission Date: 20200122
  Serious: Yes (Other)
  Sender: FDA-Public Use
  Company Number: US-UCBSA-2017010651

PATIENT
  Age: 62 Year
  Sex: Female
  Weight: 53 kg

DRUGS (7)
  1. ESLICARBAZEPINE [Concomitant]
     Active Substance: ESLICARBAZEPINE
     Indication: PRODUCT USED FOR UNKNOWN INDICATION
     Dosage: 600 MG, ONCE DAILY (QD)
     Dates: start: 2001
  2. BRIVIACT [Interacting]
     Active Substance: BRIVARACETAM
     Dosage: 50 MG, 2X/DAY (BID)
  3. COUMADIN [Interacting]
     Active Substance: WARFARIN SODIUM
     Dosage: 6 MG, ONCE DAILY (QD); TUESDAY, THURSADAY, SATURDAY AND SUNDAY
     Dates: start: 2001
  4. PHENOBARBITAL. [Suspect]
     Active Substance: PHENOBARBITAL
     Indication: SEIZURE
     Dosage: 32.4 MG, 2X/DAY (BID)
     Dates: start: 2001
  5. COUMADIN [Interacting]
     Active Substance: WARFARIN SODIUM
     Indication: AORTIC VALVE REPLACEMENT
     Dosage: 4 MG, ONCE DAILY (QD); MONDAY, WEDNESDAY AND FRIDAY; AMBER BOTTLE
     Dates: start: 2001
  6. BRIVIACT [Suspect]
     Active Substance: BRIVARACETAM
     Indication: PETIT MAL EPILEPSY
     Dosage: 100 MG, 2X/DAY (BID)
     Dates: start: 201612
  7. ESLICARBAZEPINE [Concomitant]
     Active Substance: ESLICARBAZEPINE
     Dosage: 400 MG
     Dates: end: 201705

REACTIONS (10)
  - Hypersomnia [Not Recovered/Not Resolved]
  - Oral pain [Not Recovered/Not Resolved]
  - Drug interaction [Not Recovered/Not Resolved]
  - Intentional product misuse [Unknown]
  - Diarrhoea [Not Recovered/Not Resolved]
  - Haemoptysis [Not Recovered/Not Resolved]
  - Cough [Not Recovered/Not Resolved]
  - Seizure [Not Recovered/Not Resolved]
  - Dry mouth [Not Recovered/Not Resolved]
  - International normalised ratio abnormal [Not Recovered/Not Resolved]

NARRATIVE: CASE EVENT DATE: 201612
